FAERS Safety Report 6379812-3 (Version None)
Quarter: 2009Q3

REPORT INFORMATION
  Report Type: 
  Country: None (occurrence: None)
  Receive Date: 20090928
  Receipt Date: 20090609
  Transmission Date: 20100115
  Serious: Yes (Death, Hospitalization)
  Sender: FDA-Public Use
  Company Number: ES-ELI_LILLY_AND_COMPANY-ES200906001114

PATIENT
  Age: 75 Year
  Sex: Female

DRUGS (6)
  1. FORTEO [Suspect]
     Indication: OSTEOPOROSIS
     Dosage: 20 UG, UNK
     Route: 058
     Dates: start: 20080501
  2. CORTICOSTEROID NOS [Concomitant]
  3. DEPAKENE [Concomitant]
     Indication: CONVULSION
     Dosage: UNK, UNKNOWN
     Route: 065
  4. FUROSEMIDE [Concomitant]
     Indication: OEDEMA
     Dosage: UNK, UNKNOWN
     Route: 065
  5. PANTOPRAZOLE SODIUM [Concomitant]
     Dosage: UNK, UNKNOWN
     Route: 065
  6. ENALAPRIL MALEATE [Concomitant]
     Dosage: UNK, UNKNOWN
     Route: 065

REACTIONS (6)
  - ADDISON'S DISEASE [None]
  - CARDIAC FAILURE CONGESTIVE [None]
  - DEATH [None]
  - EPILEPSY [None]
  - MYOPATHY [None]
  - VASCULITIS CEREBRAL [None]
